FAERS Safety Report 14939117 (Version 3)
Quarter: 2018Q2

REPORT INFORMATION
  Report Type: Spontaneous
  Country: CA (occurrence: CA)
  Receive Date: 20180525
  Receipt Date: 20180615
  Transmission Date: 20180711
  Serious: Yes (Hospitalization)
  Sender: FDA-Public Use
  Company Number: CA-APTEVO BIOTHERAPEUTICS LLC-18WR00006SP

PATIENT
  Age: 39 Year
  Sex: Female

DRUGS (1)
  1. WINRHO SDF [Suspect]
     Active Substance: HUMAN RHO(D) IMMUNE GLOBULIN
     Indication: PROPHYLAXIS AGAINST RH ISOIMMUNISATION
     Dosage: 300 MCG, SINGLE
     Route: 030
     Dates: start: 20180405, end: 20180405

REACTIONS (8)
  - Bradycardia [Unknown]
  - Respiratory rate increased [Unknown]
  - Pallor [Unknown]
  - Presyncope [Unknown]
  - Hyperhidrosis [Unknown]
  - Anaemia [Unknown]
  - Hypotension [Unknown]
  - Malaise [Unknown]

NARRATIVE: CASE EVENT DATE: 20180405
